FAERS Safety Report 4971909-5 (Version None)
Quarter: 2006Q2

REPORT INFORMATION
  Report Type: 
  Country: None (occurrence: None)
  Receive Date: 20060407
  Receipt Date: 20060327
  Transmission Date: 20061013
  Serious: Yes (Death)
  Sender: FDA-Public Use
  Company Number: 02100-JPN-06-0094

PATIENT
  Age: 68 Year
  Sex: Female

DRUGS (7)
  1. CILOSTAZOL, ASPIRIN [Suspect]
     Indication: CEREBRAL INFARCTION
     Dosage: ONE OF 200 MG OR 81 MG; ORAL
     Route: 048
     Dates: start: 20050723
  2. DEXTROMETHORPHAN HYDROBROMIDE [Concomitant]
  3. NIFEDIPINE [Concomitant]
  4. REBAMIPIDE [Concomitant]
  5. SERRAPEPTASE [Concomitant]
  6. NON-OYRINE PREPARATION FOR COLD SYNDROME 4 [Concomitant]
  7. ATENOLOL [Concomitant]

REACTIONS (11)
  - ACUTE MYOCARDIAL INFARCTION [None]
  - ATRIAL FIBRILLATION [None]
  - BUNDLE BRANCH BLOCK [None]
  - CARDIO-RESPIRATORY ARREST [None]
  - DEPRESSED LEVEL OF CONSCIOUSNESS [None]
  - DYSPNOEA [None]
  - FALL [None]
  - PRODUCTIVE COUGH [None]
  - TREATMENT NONCOMPLIANCE [None]
  - UPPER RESPIRATORY TRACT INFLAMMATION [None]
  - VENTRICULAR HYPERTROPHY [None]
